FAERS Safety Report 24946024 (Version 4)
Quarter: 2025Q3

REPORT INFORMATION
  Report Type: Spontaneous
  Country: JP (occurrence: JP)
  Receive Date: 20250209
  Receipt Date: 20250810
  Transmission Date: 20251021
  Serious: Yes (Other)
  Sender: ALEXION PHARMACEUTICALS
  Company Number: JP-ASTRAZENECA-250003771_063010_P_1

PATIENT
  Age: 41 Year
  Sex: Male
  Weight: 115 kg

DRUGS (10)
  1. DAPAGLIFLOZIN [Suspect]
     Active Substance: DAPAGLIFLOZIN
     Indication: Type 2 diabetes mellitus
     Dates: start: 20220208, end: 20220411
  2. DAPAGLIFLOZIN [Suspect]
     Active Substance: DAPAGLIFLOZIN
     Dates: start: 20240409, end: 20241001
  3. DAPAGLIFLOZIN [Suspect]
     Active Substance: DAPAGLIFLOZIN
     Dates: start: 20241001, end: 20241210
  4. ESOMEPRAZOLE [Concomitant]
     Active Substance: ESOMEPRAZOLE
     Dosage: 20 MILLIGRAM, QD
     Dates: start: 20220208, end: 20220411
  5. METFORMIN HYDROCHLORIDE [Concomitant]
     Active Substance: METFORMIN HYDROCHLORIDE
     Dosage: 500 MILLIGRAM, BID
     Dates: start: 20220422, end: 20230523
  6. FEBUXOSTAT [Concomitant]
     Active Substance: FEBUXOSTAT
     Dosage: 10 MILLIGRAM, QD
     Dates: start: 20220222, end: 20220802
  7. RYBELSUS [Concomitant]
     Active Substance: SEMAGLUTIDE
     Indication: Type 2 diabetes mellitus
     Dosage: 3 MILLIGRAM, QD
     Dates: start: 20220411, end: 20220424
  8. RYBELSUS [Concomitant]
     Active Substance: SEMAGLUTIDE
     Dosage: 7 MILLIGRAM, QD
     Dates: start: 20220425, end: 20220523
  9. RYBELSUS [Concomitant]
     Active Substance: SEMAGLUTIDE
     Dosage: 3 MILLIGRAM, QD
     Dates: start: 20230718, end: 20240123
  10. RYBELSUS [Concomitant]
     Active Substance: SEMAGLUTIDE
     Dosage: 7 MILLIGRAM, QD
     Dates: start: 20240123, end: 20240312

REACTIONS (4)
  - Liver disorder [Recovering/Resolving]
  - Cytomegalovirus infection [Unknown]
  - Glycosylated haemoglobin increased [Unknown]
  - Hepatitis B DNA increased [Unknown]

NARRATIVE: CASE EVENT DATE: 20240608
